FAERS Safety Report 8624921-9 (Version None)
Quarter: 2012Q3

REPORT INFORMATION
  Report Type: 
  Country: None (occurrence: None)
  Receive Date: 20120827
  Receipt Date: 20120823
  Transmission Date: 20120928
  Serious: Yes (Death)
  Sender: FDA-Public Use
  Company Number: PHHY2012MX073648

PATIENT
  Sex: Female

DRUGS (1)
  1. VALSARTAN/HYDROCHLOROTHIAZIDE [Suspect]
     Indication: HYPERTENSION
     Dosage: 1 DF (160/12.5 MG), DAILY

REACTIONS (3)
  - DEPRESSION [None]
  - MYOCARDIAL INFARCTION [None]
  - SYNCOPE [None]
